FAERS Safety Report 25177350 (Version 3)
Quarter: 2025Q2

REPORT INFORMATION
  Report Type: Spontaneous
  Country: JP (occurrence: JP)
  Receive Date: 20250409
  Receipt Date: 20250416
  Transmission Date: 20250716
  Serious: Yes (Other)
  Sender: JOHNSON AND JOHNSON
  Company Number: JP-JNJFOC-20250412692

PATIENT
  Age: 81 Year
  Sex: Male

DRUGS (1)
  1. ERLEADA [Suspect]
     Active Substance: APALUTAMIDE
     Indication: Prostate cancer
     Route: 048
     Dates: start: 202501, end: 20250404

REACTIONS (2)
  - Interstitial lung disease [Unknown]
  - Rash [Unknown]

NARRATIVE: CASE EVENT DATE: 20250101
